FAERS Safety Report 7824606-2 (Version None)
Quarter: 2011Q4

REPORT INFORMATION
  Report Type: 
  Country: None (occurrence: None)
  Receive Date: 20111019
  Receipt Date: 20111006
  Transmission Date: 20120403
  Serious: Yes (Other)
  Sender: FDA-Public Use
  Company Number: US-BAYER-2011-096165

PATIENT
  Age: 69 Year
  Sex: Male

DRUGS (2)
  1. ASPIRIN [Suspect]
     Dosage: UNK
  2. PLAVIX [Suspect]
     Indication: MYOCARDIAL INFARCTION
     Dosage: DAILY DOSE 75 MG
     Route: 048
     Dates: start: 20040101

REACTIONS (2)
  - BLEEDING TIME PROLONGED [None]
  - EPISTAXIS [None]
